FAERS Safety Report 7600424-5 (Version None)
Quarter: 2011Q2

REPORT INFORMATION
  Report Type: 
  Country: None (occurrence: None)
  Receive Date: 20110629
  Receipt Date: 20110614
  Transmission Date: 20111010
  Serious: Yes (Other)
  Sender: FDA-Public Use
  Company Number: AUR-APL-2011-03114

PATIENT
  Age: 69 Year
  Sex: Male

DRUGS (4)
  1. RABEPRAZOLE SODIUM [Concomitant]
  2. MINIAS (LORMETAZEPAM) [Concomitant]
  3. ATENOLOL [Suspect]
     Indication: PRODUCT USED FOR UNKNOWN INDICATION
     Dosage: 1 DOSAGE FORMS, 1 D, ORAL
     Route: 048
     Dates: start: 20110415, end: 20110416
  4. MICROSER (BETAHISTINE HYDROCHLORIDE) [Concomitant]

REACTIONS (2)
  - PRESYNCOPE [None]
  - BRADYCARDIA [None]
